FAERS Safety Report 25632147 (Version 1)
Quarter: 2025Q3

REPORT INFORMATION
  Report Type: Spontaneous
  Country: US (occurrence: None)
  Receive Date: 20250731
  Receipt Date: 20250731
  Transmission Date: 20251020
  Serious: Yes (Other)
  Sender: FDA-CTU
  Company Number: None

PATIENT
  Age: 46 Year
  Sex: Male
  Weight: 118.8 kg

DRUGS (5)
  1. ZEPBOUND [Suspect]
     Active Substance: TIRZEPATIDE
     Indication: Obesity
     Route: 058
     Dates: start: 20250702, end: 20250730
  2. DEVICE [Concomitant]
     Active Substance: DEVICE
  3. febuxostat 20mg [Concomitant]
  4. vitamin D-3 50,000U [Concomitant]
  5. Vitamin B-12 500mcg [Concomitant]

REACTIONS (3)
  - Headache [None]
  - Blood pressure increased [None]
  - Fatigue [None]

NARRATIVE: CASE EVENT DATE: 20250725
